FAERS Safety Report 6156542-4 (Version None)
Quarter: 2009Q2

REPORT INFORMATION
  Report Type: 
  Country: None (occurrence: None)
  Receive Date: 20090416
  Receipt Date: 20090408
  Transmission Date: 20091009
  Serious: No
  Sender: FDA-Public Use
  Company Number: US-B.I. PHARMACEUTICALS,INC./RIDGEFIELD-2009-BP-04617BP

PATIENT
  Sex: Female

DRUGS (9)
  1. SPIRIVA [Suspect]
     Indication: CHRONIC OBSTRUCTIVE PULMONARY DISEASE
     Dates: start: 20081101
  2. SPIRIVA [Suspect]
     Indication: EMPHYSEMA
  3. SPIRIVA [Suspect]
     Indication: DYSPNOEA
  4. ALBUTEROL [Concomitant]
     Indication: EMPHYSEMA
  5. ALBUTEROL [Concomitant]
     Indication: CHRONIC OBSTRUCTIVE PULMONARY DISEASE
  6. ALBUTEROL [Concomitant]
     Indication: DYSPNOEA
  7. ATROVENT HFA [Concomitant]
     Indication: EMPHYSEMA
  8. ATROVENT HFA [Concomitant]
     Indication: CHRONIC OBSTRUCTIVE PULMONARY DISEASE
  9. ATROVENT HFA [Concomitant]
     Indication: DYSPNOEA

REACTIONS (1)
  - ADVERSE DRUG REACTION [None]
